FAERS Safety Report 4488082-2 (Version None)
Quarter: 2004Q4

REPORT INFORMATION
  Report Type: 
  Country: None (occurrence: None)
  Receive Date: 20041028
  Receipt Date: 20041019
  Transmission Date: 20050328
  Serious: Yes (Other)
  Sender: FDA-Public Use
  Company Number: ES-GLAXOSMITHKLINE-B0348824A

PATIENT

DRUGS (2)
  1. ADEFOVIR DIPIVOXIL [Suspect]
     Route: 065
  2. LAMIVUDINE [Suspect]
     Dosage: 100MG PER DAY
     Route: 065

REACTIONS (4)
  - ALANINE AMINOTRANSFERASE INCREASED [None]
  - HEPATITIS B [None]
  - MULTIPLE-DRUG RESISTANCE [None]
  - PATHOGEN RESISTANCE [None]
